FAERS Safety Report 15052750 (Version 6)
Quarter: 2019Q1

REPORT INFORMATION
  Report Type: Report from Study
  Country: FR (occurrence: FR)
  Receive Date: 20180622
  Receipt Date: 20190320
  Transmission Date: 20190417
  Serious: Yes (Hospitalization)
  Sender: FDA-Public Use
  Company Number: FR-SA-2018SA153686

PATIENT
  Age: 54 Year
  Sex: Female

DRUGS (18)
  1. LANTUS [Suspect]
     Active Substance: INSULIN GLARGINE
     Indication: TYPE 2 DIABETES MELLITUS
     Dosage: 80 DF, QD
     Route: 058
     Dates: start: 20180302, end: 20180308
  2. REPAGLINIDE. [Suspect]
     Active Substance: REPAGLINIDE
     Dosage: UNK UNK, UNK
     Route: 048
     Dates: start: 20180108
  3. RAMIPRIL. [Concomitant]
     Active Substance: RAMIPRIL
     Indication: HYPERTENSION
     Dosage: TOTAL DOSE: 20 MG
     Route: 048
     Dates: start: 201609
  4. ASPIRINE [Concomitant]
     Active Substance: ASPIRIN
     Indication: MYOCARDIAL INFARCTION
     Dosage: TOTAL DOSE: 100 MG
     Route: 048
     Dates: start: 201609
  5. SOTAGLIFLOZIN [Suspect]
     Active Substance: SOTAGLIFLOZIN
     Indication: TYPE 2 DIABETES MELLITUS
     Dosage: 2 DF, QD
     Route: 048
     Dates: start: 20180525, end: 20180614
  6. SOTAGLIFLOZIN [Suspect]
     Active Substance: SOTAGLIFLOZIN
     Dosage: 2 DF, QD
     Route: 048
     Dates: start: 20180420, end: 20180524
  7. LANTUS [Suspect]
     Active Substance: INSULIN GLARGINE
     Dosage: 84 DF, QD
     Route: 058
     Dates: start: 20180309, end: 20180322
  8. LANTUS [Suspect]
     Active Substance: INSULIN GLARGINE
     Dosage: 76 U, QD
     Route: 058
     Dates: start: 20180301, end: 20180301
  9. AMAREL [Suspect]
     Active Substance: GLIMEPIRIDE
     Dosage: TOTAL DAILY DOSE 1.5 MG
     Route: 048
     Dates: start: 20180607, end: 20180611
  10. TRINITRIN [Concomitant]
     Active Substance: NITROGLYCERIN
     Indication: MYOCARDIAL INFARCTION
     Dosage: TOTAL DOSE: 1 DF PRN
     Route: 050
     Dates: start: 20150523
  11. PARACETAMOL [Concomitant]
     Active Substance: ACETAMINOPHEN
     Indication: NASOPHARYNGITIS
     Dosage: TOTAL DOSE: 1 G
     Route: 048
     Dates: start: 20180522, end: 20180529
  12. LEVOTHYROX [Concomitant]
     Active Substance: LEVOTHYROXINE
     Indication: HYPERTHYROIDISM
     Dosage: TOTAL DOSE: 75 UG
     Route: 048
     Dates: start: 20110406
  13. AMAREL [Suspect]
     Active Substance: GLIMEPIRIDE
     Indication: TYPE 2 DIABETES MELLITUS
     Dosage: TOTAL DAILY DOSE 3 MG
     Route: 048
     Dates: start: 2015, end: 20180606
  14. AMOXICILLIN. [Concomitant]
     Active Substance: AMOXICILLIN
     Indication: NASOPHARYNGITIS
     Dosage: TOTAL DOSE: 3 G
     Route: 048
     Dates: start: 20180522, end: 20180529
  15. SOTAGLIFLOZIN [Suspect]
     Active Substance: SOTAGLIFLOZIN
     Dosage: 2 DF, QD
     Route: 048
     Dates: start: 20180323, end: 20180419
  16. BISOPROLOL [Concomitant]
     Active Substance: BISOPROLOL
     Indication: HYPERTENSION
     Dosage: TOTAL DOSE: 7.5 MG
     Route: 048
     Dates: start: 201505
  17. METFORMIN HYDROCHLORIDE. [Suspect]
     Active Substance: METFORMIN HYDROCHLORIDE
     Indication: TYPE 2 DIABETES MELLITUS
     Dosage: 2000 MG
     Route: 048
     Dates: start: 2001
  18. LANTUS [Suspect]
     Active Substance: INSULIN GLARGINE
     Dosage: 72 DF, QD
     Route: 058
     Dates: start: 20180226, end: 20180228

REACTIONS (1)
  - Hypoglycaemia [Recovered/Resolved]

NARRATIVE: CASE EVENT DATE: 20180606
